FAERS Safety Report 25858636 (Version 2)
Quarter: 2025Q4

REPORT INFORMATION
  Report Type: Spontaneous
  Country: GB (occurrence: GB)
  Receive Date: 20250929
  Receipt Date: 20251117
  Transmission Date: 20260118
  Serious: No
  Sender: PFIZER
  Company Number: GB-PFIZER INC-PV202500114841

PATIENT
  Age: 74 Year
  Sex: Male

DRUGS (1)
  1. ENBREL [Suspect]
     Active Substance: ETANERCEPT
     Dosage: UNK

REACTIONS (2)
  - Drug dose omission by device [Unknown]
  - Device safety feature issue [Unknown]
